FAERS Safety Report 4490529-2 (Version None)
Quarter: 2004Q4

REPORT INFORMATION
  Report Type: 
  Country: None (occurrence: None)
  Receive Date: 20041029
  Receipt Date: 20041019
  Transmission Date: 20050328
  Serious: Yes (Hospitalization)
  Sender: FDA-Public Use
  Company Number: 2004UW21827

PATIENT
  Age: 75 Year
  Sex: Male
  Weight: 70 kg

DRUGS (5)
  1. CRESTOR [Suspect]
     Dosage: 10 MG PO
     Route: 048
     Dates: start: 20040728, end: 20040917
  2. GLUCOBAY [Concomitant]
  3. NAPRIX [Concomitant]
  4. DIAMICRON [Concomitant]
  5. ASPIRIN [Concomitant]

REACTIONS (2)
  - JAUNDICE [None]
  - NAUSEA [None]
